FAERS Safety Report 25221561 (Version 1)
Quarter: 2025Q2

REPORT INFORMATION
  Report Type: Spontaneous
  Country: US (occurrence: None)
  Receive Date: 20250421
  Receipt Date: 20250421
  Transmission Date: 20250716
  Serious: No
  Sender: FDA-CTU
  Company Number: None

PATIENT
  Age: 98 Year
  Sex: Female

DRUGS (1)
  1. SILDENAFIL [Suspect]
     Active Substance: SILDENAFIL
     Indication: Pulmonary hypertension
     Dosage: OTHER QUANTITY : 1;?FREQUENCY : TWICE A DAY;?
     Route: 048
     Dates: start: 20220101, end: 20250421

REACTIONS (1)
  - Death [None]

NARRATIVE: CASE EVENT DATE: 20250420
